FAERS Safety Report 10565829 (Version 2)
Quarter: 2014Q4

REPORT INFORMATION
  Report Type: Report from Study
  Country: DE (occurrence: DE)
  Receive Date: 20141105
  Receipt Date: 20141113
  Transmission Date: 20150529
  Serious: Yes (Hospitalization, Other)
  Sender: FDA-Public Use
  Company Number: PHHY2014DE139668

PATIENT
  Sex: Female
  Weight: 54 kg

DRUGS (2)
  1. AFINITOR [Suspect]
     Active Substance: EVEROLIMUS
     Indication: BREAST CANCER METASTATIC
     Dosage: 10 MG, QD
     Route: 048
     Dates: start: 20140714, end: 20141014
  2. EXEMESTANE ACTAVIS [Suspect]
     Active Substance: EXEMESTANE
     Indication: BREAST CANCER METASTATIC
     Dosage: 25 MG, QD
     Route: 048
     Dates: start: 20140714

REACTIONS (12)
  - Circulatory collapse [Recovered/Resolved]
  - Constipation [Recovering/Resolving]
  - Abdominal pain [Recovering/Resolving]
  - Aneurysm [Unknown]
  - General physical health deterioration [Recovering/Resolving]
  - Anaemia [Recovered/Resolved]
  - Pyrexia [Recovering/Resolving]
  - Escherichia infection [Unknown]
  - Dehydration [Recovered/Resolved]
  - Decreased appetite [Recovering/Resolving]
  - Nausea [Recovering/Resolving]
  - Leukopenia [Recovered/Resolved]

NARRATIVE: CASE EVENT DATE: 20140920
